FAERS Safety Report 18244051 (Version 1)
Quarter: 2020Q3

REPORT INFORMATION
  Report Type: Spontaneous
  Country: US (occurrence: US)
  Receive Date: 20200908
  Receipt Date: 20200908
  Transmission Date: 20201103
  Serious: No
  Sender: FDA-Public Use
  Company Number: US-PFIZER INC-2020344532

PATIENT
  Age: 25 Year
  Sex: Female

DRUGS (2)
  1. DUAVEE [Suspect]
     Active Substance: BAZEDOXIFENE ACETATE\ESTROGENS, CONJUGATED
     Indication: ENDOMETRIOSIS
     Dosage: UNK
  2. ORILISSA [Suspect]
     Active Substance: ELAGOLIX SODIUM
     Indication: ENDOMETRIOSIS
     Dosage: UNK

REACTIONS (7)
  - Abdominal pain [Unknown]
  - Off label use [Unknown]
  - Product use in unapproved indication [Unknown]
  - Back pain [Unknown]
  - Vulvovaginal pain [Unknown]
  - Drug effective for unapproved indication [Unknown]
  - Asthenia [Unknown]
